FAERS Safety Report 15061242 (Version 1)
Quarter: 2018Q2

REPORT INFORMATION
  Report Type: Spontaneous
  Country: US (occurrence: US)
  Receive Date: 20180625
  Receipt Date: 20180625
  Transmission Date: 20180711
  Serious: No
  Sender: FDA-Public Use
  Company Number: US-ROCHE-2072150

PATIENT
  Age: 83 Year
  Sex: Female
  Weight: 63.56 kg

DRUGS (2)
  1. XELODA [Suspect]
     Active Substance: CAPECITABINE
     Indication: BREAST CANCER STAGE IV
     Route: 048
     Dates: start: 2017
  2. XELODA [Suspect]
     Active Substance: CAPECITABINE
     Dosage: 2 WEEKS ON, 1 WEEK OFF
     Route: 048

REACTIONS (4)
  - Visual impairment [Not Recovered/Not Resolved]
  - Dry eye [Unknown]
  - Rash [Not Recovered/Not Resolved]
  - Therapy cessation [Unknown]

NARRATIVE: CASE EVENT DATE: 201712
